FAERS Safety Report 5958004-3 (Version None)
Quarter: 2008Q4

REPORT INFORMATION
  Report Type: 
  Country: None (occurrence: None)
  Receive Date: 20081119
  Receipt Date: 20081105
  Transmission Date: 20090506
  Serious: Yes (Other)
  Sender: FDA-Public Use
  Company Number: PHHY2008ES27155

PATIENT
  Age: 80 Year
  Sex: Female

DRUGS (3)
  1. EXFORGE [Suspect]
     Dosage: 10/160,DAILY
     Dates: start: 20081101
  2. ASPIRIN [Concomitant]
     Dosage: 100 MG, QD
     Route: 048
  3. LORAZEPAM [Concomitant]
     Dosage: HALF PILL, PRN

REACTIONS (4)
  - DIZZINESS [None]
  - HYPOACUSIS [None]
  - MALAISE [None]
  - PERIPHERAL COLDNESS [None]
